FAERS Safety Report 9459501 (Version 3)
Quarter: 2013Q3

REPORT INFORMATION
  Report Type: Spontaneous
  Country: US (occurrence: US)
  Receive Date: 20130815
  Receipt Date: 20130926
  Transmission Date: 20140515
  Serious: Yes (Other)
  Sender: FDA-Public Use
  Company Number: US-PFIZER INC-2013235976

PATIENT
  Sex: Female

DRUGS (2)
  1. CHANTIX [Suspect]
     Indication: SMOKING CESSATION THERAPY
     Dosage: UNK
  2. TRAZODONE [Concomitant]
     Dosage: UNK

REACTIONS (3)
  - Suicidal ideation [Unknown]
  - Anger [Unknown]
  - Nightmare [Unknown]
